FAERS Safety Report 7074736-0 (Version None)
Quarter: 2010Q4

REPORT INFORMATION
  Report Type: 
  Country: None (occurrence: None)
  Receive Date: 20101029
  Receipt Date: 20101026
  Transmission Date: 20110411
  Serious: Yes (Hospitalization, Other)
  Sender: FDA-Public Use
  Company Number: US-RB-014716-10

PATIENT
  Age: 63 Year
  Sex: Male

DRUGS (2)
  1. SUBOXONE TABLET [Suspect]
     Dosage: DRUG DOSAGE UNKNOWN AT THIS TIME.
     Route: 065
  2. SUBOXONE TABLET [Suspect]
     Dosage: STATES HE WAS SELF-TAPERING,TAKING LESS THAN PRESCRIBED
     Route: 065

REACTIONS (9)
  - DIZZINESS [None]
  - FALL [None]
  - HYPERTENSION [None]
  - INTENTIONAL DRUG MISUSE [None]
  - JOINT INJURY [None]
  - MALAISE [None]
  - NAUSEA [None]
  - TONGUE COATED [None]
  - VOMITING [None]
